FAERS Safety Report 23861223 (Version 2)
Quarter: 2024Q3

REPORT INFORMATION
  Report Type: Spontaneous
  Country: GB (occurrence: GB)
  Receive Date: 20240516
  Receipt Date: 20240808
  Transmission Date: 20241017
  Serious: No
  Sender: CELLTRION
  Company Number: GB-CELLTRION INC.-2024GB011347

PATIENT

DRUGS (1)
  1. YUFLYMA [Suspect]
     Active Substance: ADALIMUMAB-AATY
     Indication: Rheumatoid arthritis
     Dosage: 40MG PRE FILLED PEN
     Route: 058
     Dates: start: 202401

REACTIONS (5)
  - Colonoscopy [Unknown]
  - Diarrhoea [Unknown]
  - Injection site haemorrhage [Unknown]
  - Asthenia [Unknown]
  - Intentional dose omission [Unknown]
